FAERS Safety Report 6383963-7 (Version None)
Quarter: 2009Q3

REPORT INFORMATION
  Report Type: 
  Country: None (occurrence: None)
  Receive Date: 20090928
  Receipt Date: 20090918
  Transmission Date: 20100115
  Serious: Yes (Other)
  Sender: FDA-Public Use
  Company Number: 230031J09DEU

PATIENT
  Age: 46 Year
  Sex: Female

DRUGS (2)
  1. REBIF [Suspect]
     Indication: MULTIPLE SCLEROSIS
     Dosage: 22, 3 IN 1 WEEKS
     Dates: start: 20090818
  2. SHARON PREPARAT (ST JOHN'S WORT) (HYPERICUMPERFORATUM) [Concomitant]

REACTIONS (1)
  - UTERINE CERVICAL SQUAMOUS METAPLASIA [None]
